FAERS Safety Report 8283191-4 (Version None)
Quarter: 2012Q2

REPORT INFORMATION
  Report Type: 
  Country: None (occurrence: None)
  Receive Date: 20120413
  Receipt Date: 20120402
  Transmission Date: 20120825
  Serious: Yes (Hospitalization)
  Sender: FDA-Public Use
  Company Number: US-JNJFOC-20120401590

PATIENT
  Sex: Male
  Weight: 72.2 kg

DRUGS (13)
  1. ZYRTEC [Concomitant]
  2. LEVSIN/SL [Concomitant]
  3. LORTAB [Concomitant]
  4. MYTUSSIN [Concomitant]
  5. ALBUTEROL [Concomitant]
     Route: 055
  6. PREDNISONE TAB [Concomitant]
  7. MERCAPTOPURINE [Concomitant]
  8. BENADRYL [Concomitant]
  9. TYLENOL (CAPLET) [Concomitant]
  10. SINGULAIR [Concomitant]
  11. PREVACID [Concomitant]
  12. REMICADE [Suspect]
     Indication: INFLAMMATORY BOWEL DISEASE
     Route: 042
     Dates: start: 20111006
  13. MIRALAX [Concomitant]

REACTIONS (1)
  - CONSTIPATION [None]
